APPROVED DRUG PRODUCT: HYDROMORPHONE HYDROCHLORIDE
Active Ingredient: HYDROMORPHONE HYDROCHLORIDE
Strength: 10MG/ML
Dosage Form/Route: INJECTABLE;INJECTION
Application: A076444 | Product #001
Applicant: BARR LABORATORIES INC
Approved: Apr 25, 2003 | RLD: No | RS: No | Type: DISCN